FAERS Safety Report 21024375 (Version 3)
Quarter: 2022Q3

REPORT INFORMATION
  Report Type: Report from Study
  Country: US (occurrence: US)
  Receive Date: 20220629
  Receipt Date: 20220818
  Transmission Date: 20221026
  Serious: Yes (Hospitalization)
  Sender: FDA-Public Use
  Company Number: US-PFIZER INC-PV202200006071

PATIENT
  Age: 76 Year
  Sex: Male

DRUGS (3)
  1. INVESTIGATIONAL PRODUCT [Suspect]
     Active Substance: INVESTIGATIONAL PRODUCT
     Indication: Leiomyosarcoma metastatic
     Dosage: MG/KG, CYCLE 1 / DAY 1, INFUSION/INTRAVENOUS
     Route: 042
     Dates: start: 20220607
  2. DOXORUBICIN HYDROCHLORIDE [Suspect]
     Active Substance: DOXORUBICIN HYDROCHLORIDE
     Indication: Leiomyosarcoma metastatic
     Dosage: 75 MG/M2, CYCLE 1 / DAY 1, INFUSION/INTRAVENOUS
     Route: 042
     Dates: start: 20220607
  3. PEGFILGRASTIM [Concomitant]
     Active Substance: PEGFILGRASTIM
     Indication: Prophylaxis
     Dosage: 6 MG, ONCE
     Route: 058
     Dates: start: 20220607, end: 20220607

REACTIONS (1)
  - Staphylococcal sepsis [Recovered/Resolved]

NARRATIVE: CASE EVENT DATE: 20220615
